FAERS Safety Report 11582089 (Version 1)
Quarter: 2015Q3

REPORT INFORMATION
  Report Type: Spontaneous
  Country: None (occurrence: None)
  Receive Date: 20150930
  Receipt Date: 20150930
  Transmission Date: 20151125
  Serious: No
  Sender: FDA-Public Use
  Company Number: None

PATIENT
  Age: 17 Year
  Sex: Female
  Weight: 56.7 kg

DRUGS (2)
  1. PROVENTIL HFA [Suspect]
     Active Substance: ALBUTEROL SULFATE
     Indication: ASTHMA
     Dosage: 2 OUFFS EVERY 4 HOURS AS NEEDED
     Route: 055
     Dates: start: 20140401, end: 20150923
  2. PROVENTIL HFA [Suspect]
     Active Substance: ALBUTEROL SULFATE
     Indication: ASTHMA EXERCISE INDUCED
     Dosage: 2 OUFFS EVERY 4 HOURS AS NEEDED
     Route: 055
     Dates: start: 20140401, end: 20150923

REACTIONS (1)
  - Tachycardia [None]

NARRATIVE: CASE EVENT DATE: 20150901
